FAERS Safety Report 17237614 (Version 1)
Quarter: 2020Q1

REPORT INFORMATION
  Report Type: Spontaneous
  Country: US (occurrence: US)
  Receive Date: 20200106
  Receipt Date: 20200106
  Transmission Date: 20200409
  Serious: No
  Sender: FDA-Public Use
  Company Number: US-AMNEAL PHARMACEUTICALS-2018AMN01067

PATIENT
  Sex: Female
  Weight: 72.56 kg

DRUGS (1)
  1. PHENYTOIN SODIUM. [Suspect]
     Active Substance: PHENYTOIN SODIUM
     Indication: EPILEPSY
     Dosage: 1 CAPSULES, 4X/DAY
     Route: 048
     Dates: start: 20181113

REACTIONS (1)
  - Product taste abnormal [Not Recovered/Not Resolved]
